FAERS Safety Report 20091901 (Version 1)
Quarter: 2021Q4

REPORT INFORMATION
  Report Type: Spontaneous
  Country: US (occurrence: US)
  Receive Date: 20211119
  Receipt Date: 20211119
  Transmission Date: 20220303
  Serious: No
  Sender: FDA-Public Use
  Company Number: US-GLAXOSMITHKLINE-USCH2021AMR082645

PATIENT
  Sex: Male

DRUGS (4)
  1. IBUPROFEN [Suspect]
     Active Substance: IBUPROFEN
     Indication: Tinnitus
     Dosage: 800 MG, TID
  2. IBUPROFEN [Suspect]
     Active Substance: IBUPROFEN
     Indication: Intervertebral disc protrusion
  3. PREDNISONE [Suspect]
     Active Substance: PREDNISONE
     Indication: Tinnitus
     Dosage: UNK
  4. PREDNISONE [Suspect]
     Active Substance: PREDNISONE
     Indication: Intervertebral disc protrusion

REACTIONS (3)
  - Tinnitus [Unknown]
  - Condition aggravated [Unknown]
  - Off label use [Unknown]
